FAERS Safety Report 21076322 (Version 14)
Quarter: 2023Q1

REPORT INFORMATION
  Report Type: Report from Study
  Country: AT (occurrence: AT)
  Receive Date: 20220713
  Receipt Date: 20230227
  Transmission Date: 20230418
  Serious: Yes (Hospitalization, Other)
  Sender: FDA-Public Use
  Company Number: AT-PFM-2022-05205

PATIENT
  Age: 83 Year
  Sex: Female
  Weight: 66 kg

DRUGS (4)
  1. ENCORAFENIB [Suspect]
     Active Substance: ENCORAFENIB
     Indication: Malignant melanoma
     Dosage: 450 MG/1 X PER DAY
     Route: 048
     Dates: start: 20220426, end: 20220611
  2. BINIMETINIB [Suspect]
     Active Substance: BINIMETINIB
     Indication: Malignant melanoma
     Dosage: 45 MG, BID (2/DAY)
     Route: 048
     Dates: start: 20220426, end: 20220611
  3. BEPANTHEN [DEXPANTHENOL;HYALURONATE SODIUM] [Concomitant]
     Dosage: UNK
     Route: 065
     Dates: start: 20220427
  4. LOVENOX [Concomitant]
     Active Substance: ENOXAPARIN SODIUM
     Indication: Prophylaxis
     Dosage: UNK
     Route: 065
     Dates: start: 20220612, end: 20220619

REACTIONS (7)
  - Gamma-glutamyltransferase increased [Recovered/Resolved]
  - Diarrhoea [Recovered/Resolved]
  - Leukoencephalopathy [Not Recovered/Not Resolved]
  - C-reactive protein increased [Recovered/Resolved]
  - Blood bilirubin increased [Recovered/Resolved]
  - Blood lactate dehydrogenase increased [Recovered/Resolved]
  - Cough [Unknown]

NARRATIVE: CASE EVENT DATE: 20220429
